FAERS Safety Report 18810860 (Version 2)
Quarter: 2021Q1

REPORT INFORMATION
  Report Type: Spontaneous
  Country: US (occurrence: US)
  Receive Date: 20210129
  Receipt Date: 20210319
  Transmission Date: 20210419
  Serious: No
  Sender: FDA-Public Use
  Company Number: US-ASTRAZENECA-2021A004398

PATIENT
  Age: 51 Year
  Sex: Male
  Weight: 108.9 kg

DRUGS (1)
  1. PULMICORT FLEXHALER [Suspect]
     Active Substance: BUDESONIDE
     Indication: ASTHMA
     Route: 055

REACTIONS (4)
  - Device issue [Unknown]
  - Asthma [Recovered/Resolved]
  - Wrong technique in device usage process [Unknown]
  - Product taste abnormal [Unknown]
